FAERS Safety Report 25473177 (Version 3)
Quarter: 2025Q3

REPORT INFORMATION
  Report Type: Report from Study
  Country: US (occurrence: US)
  Receive Date: 20250624
  Receipt Date: 20250903
  Transmission Date: 20251021
  Serious: Yes (Hospitalization)
  Sender: ESTEVE
  Company Number: US-Esteve Pharmaceuticals SA-2179267

PATIENT
  Age: 66 Year
  Sex: Female

DRUGS (21)
  1. METOPIRONE [Suspect]
     Active Substance: METYRAPONE
     Indication: Pituitary-dependent Cushing^s syndrome
     Dates: start: 20250409
  2. CODEINE/GG [Concomitant]
  3. METOPIRONE [Suspect]
     Active Substance: METYRAPONE
  4. METOPIRONE [Suspect]
     Active Substance: METYRAPONE
  5. TRAMADOL HCL [Concomitant]
     Active Substance: TRAMADOL HYDROCHLORIDE
  6. SIMVASTATIN [Concomitant]
     Active Substance: SIMVASTATIN
  7. REGLAN [Concomitant]
     Active Substance: METOCLOPRAMIDE HYDROCHLORIDE
  8. OZEMPIC [Concomitant]
     Active Substance: SEMAGLUTIDE
  9. ONDANSERTON [Concomitant]
  10. NOVOLOG INJ FLEXPEN [Concomitant]
  11. MIRENA IUD SYSTEM [Concomitant]
  12. METOPROLOL TARTRATE [Concomitant]
     Active Substance: METOPROLOL TARTRATE
  13. METFORMIN [Concomitant]
     Active Substance: METFORMIN HYDROCHLORIDE
  14. MELATONIN [Concomitant]
     Active Substance: MELATONIN
  15. LISINOPRIL [Concomitant]
     Active Substance: LISINOPRIL
  16. LEVOTHYROXINE [Concomitant]
     Active Substance: LEVOTHYROXINE
  17. LANTUS SOLOS [Concomitant]
  18. ACETAMINOPHEN\HYDROCODONE [Concomitant]
     Active Substance: ACETAMINOPHEN\HYDROCODONE
  19. FREESTY LIBR MIS 3 READER [Concomitant]
  20. FREESTY LIBR KIT 3 SENSOR [Concomitant]
  21. DILTIAZEM [Concomitant]
     Active Substance: DILTIAZEM

REACTIONS (5)
  - Blood test abnormal [Unknown]
  - Off label use [Unknown]
  - Product dose omission issue [Unknown]
  - Blood potassium increased [Unknown]
  - Dehydration [Unknown]
